FAERS Safety Report 10510011 (Version 1)
Quarter: 2014Q4

REPORT INFORMATION
  Report Type: Spontaneous
  Country: US (occurrence: None)
  Receive Date: 20141009
  Receipt Date: 20141009
  Transmission Date: 20150528
  Serious: Yes (Hospitalization)
  Sender: FDA-Public Use
  Company Number: None

PATIENT
  Age: 62 Year
  Sex: Female
  Weight: 109 kg

DRUGS (1)
  1. CYTARABINE. [Suspect]
     Active Substance: CYTARABINE
     Dates: end: 20120308

REACTIONS (11)
  - Pyrexia [None]
  - Fluid overload [None]
  - Asthenia [None]
  - Hypotension [None]
  - Toxicity to various agents [None]
  - Enterococcus test positive [None]
  - Cardiac failure congestive [None]
  - Confusional state [None]
  - Culture urine positive [None]
  - Dysarthria [None]
  - Ataxia [None]

NARRATIVE: CASE EVENT DATE: 20120315
